FAERS Safety Report 9231414 (Version 1)
Quarter: 2013Q2

REPORT INFORMATION
  Report Type: Spontaneous
  Country: GB (occurrence: GB)
  Receive Date: 20130415
  Receipt Date: 20130415
  Transmission Date: 20140414
  Serious: Yes (Life-Threatening, Hospitalization, Other)
  Sender: FDA-Public Use
  Company Number: GB-TEVA-396630ISR

PATIENT
  Age: 27 Year
  Sex: Male

DRUGS (11)
  1. LEVOFLOXACIN [Suspect]
     Indication: Q FEVER
     Dosage: 750 MILLIGRAM DAILY; 5 MG / ML (100ML)
     Route: 042
     Dates: start: 20121230, end: 20121230
  2. CO-CODAMOL [Concomitant]
     Dosage: 8 DOSAGE FORMS DAILY; CODEINE PHOSPHATE 30 / PARACETAMOL 500
  3. IBUPROFEN [Concomitant]
     Dosage: 1600 MILLIGRAM DAILY;
  4. PARACETAMOL [Concomitant]
     Dosage: 4 GRAM DAILY;
  5. OMEPRAZOLE [Concomitant]
     Dosage: 20 MILLIGRAM DAILY;
  6. DOXYCYCLINE [Concomitant]
     Dosage: 200 MILLIGRAM DAILY;
  7. CO-AMOXICLAV [Concomitant]
     Dosage: 3.6 GRAM DAILY;
  8. TRAMADOL [Concomitant]
     Dosage: 400 MILLIGRAM DAILY;
  9. ORAMORPH [Concomitant]
     Dosage: 10MG/5ML 2-4 HOURS
  10. NORMAL SALINE [Concomitant]
  11. DEXTROSE [Concomitant]

REACTIONS (4)
  - Anaphylactic reaction [Recovered/Resolved]
  - Pulmonary oedema [Unknown]
  - Hepatic failure [Unknown]
  - Renal failure [Unknown]
